FAERS Safety Report 8531805-3 (Version None)
Quarter: 2012Q3

REPORT INFORMATION
  Report Type: 
  Country: None (occurrence: None)
  Receive Date: 20120723
  Receipt Date: 20120709
  Transmission Date: 20120928
  Serious: No
  Sender: FDA-Public Use
  Company Number: US-ASTRAZENECA-2012SE47069

PATIENT
  Age: 87 Year
  Sex: Female
  Weight: 68 kg

DRUGS (4)
  1. SYMBICORT [Suspect]
     Indication: ASTHMA
     Dosage: 80/4.5, 2 PUFF TWICE A  DAY
     Route: 055
     Dates: start: 20120201
  2. METOPROLOL SUCCINATE [Suspect]
     Route: 048
  3. DIOVAN [Concomitant]
  4. SYMBICORT [Suspect]
     Dosage: 80/4.5, 1 PUFF PER DAY
     Route: 055
     Dates: start: 20120201

REACTIONS (5)
  - PARAESTHESIA [None]
  - OEDEMA PERIPHERAL [None]
  - HYPERTENSION [None]
  - OFF LABEL USE [None]
  - HYPOAESTHESIA [None]
